FAERS Safety Report 9271193 (Version 2)
Quarter: 2013Q2

REPORT INFORMATION
  Report Type: Spontaneous
  Country: GB (occurrence: GB)
  Receive Date: 20130506
  Receipt Date: 20130516
  Transmission Date: 20140414
  Serious: Yes (Other)
  Sender: FDA-Public Use
  Company Number: PHHY2013GB042944

PATIENT
  Age: 69 Year
  Sex: Male

DRUGS (2)
  1. ZOLEDRONATE [Suspect]
     Dosage: 5 MG, UNK
     Route: 042
     Dates: start: 20111107, end: 20121108
  2. CALCIUM W/COLECALCIFEROL [Concomitant]
     Indication: OSTEOPOROSIS
     Route: 048

REACTIONS (2)
  - Lichenoid keratosis [Not Recovered/Not Resolved]
  - Rash generalised [Not Recovered/Not Resolved]
